FAERS Safety Report 19936132 (Version 2)
Quarter: 2021Q4

REPORT INFORMATION
  Report Type: Report from Study
  Country: EG (occurrence: EG)
  Receive Date: 20211009
  Receipt Date: 20211019
  Transmission Date: 20220303
  Serious: Yes (Other)
  Sender: FDA-Public Use
  Company Number: NVSC2021EG227157

PATIENT
  Age: 61 Year
  Sex: Male

DRUGS (9)
  1. ENTRESTO [Suspect]
     Active Substance: SACUBITRIL\VALSARTAN
     Indication: Cardiac failure
     Dosage: 300 MG (100MG IN THE MORNING AND ONE TABLET ENTRESTO 200 MG AT NIGHT DAILY)
     Route: 048
     Dates: start: 202105, end: 20210702
  2. ENTRESTO [Suspect]
     Active Substance: SACUBITRIL\VALSARTAN
     Dosage: 100 MG, BID
     Route: 048
     Dates: start: 202107
  3. IVABRADINE [Concomitant]
     Active Substance: IVABRADINE
     Indication: Hypertension
     Dosage: 5 MG, BID
     Route: 065
  4. PLAVIX [Concomitant]
     Active Substance: CLOPIDOGREL BISULFATE
     Indication: Product used for unknown indication
     Dosage: 75 MG, QD
     Route: 065
  5. ASPIRIN [Concomitant]
     Active Substance: ASPIRIN
     Indication: Product used for unknown indication
     Dosage: 100 MG, QD
     Route: 048
  6. EXAMIDE [Concomitant]
     Indication: Hypertension
     Dosage: 10 MG, QD
     Route: 065
  7. EXAMIDE [Concomitant]
     Indication: Polyuria
  8. DAPAGLIFLOZIN [Concomitant]
     Active Substance: DAPAGLIFLOZIN
     Indication: Product used for unknown indication
     Dosage: 10 MG, QD
     Route: 065
  9. JANUVIA [Concomitant]
     Active Substance: SITAGLIPTIN PHOSPHATE
     Indication: Product used for unknown indication
     Dosage: 100 MG, QD
     Route: 065

REACTIONS (8)
  - COVID-19 [Recovered/Resolved]
  - Fatigue [Recovering/Resolving]
  - Productive cough [Recovering/Resolving]
  - Dyspnoea exertional [Recovering/Resolving]
  - Allergic bronchitis [Recovering/Resolving]
  - Lung disorder [Recovering/Resolving]
  - Ejection fraction decreased [Recovering/Resolving]
  - Incorrect dose administered [Recovered/Resolved]

NARRATIVE: CASE EVENT DATE: 20210501
